FAERS Safety Report 9206018 (Version 1)
Quarter: 2013Q1

REPORT INFORMATION
  Report Type: Spontaneous
  Country: US (occurrence: None)
  Receive Date: 20120709
  Receipt Date: 20120709
  Transmission Date: 20140127
  Serious: Yes (Other)
  Sender: FDA-Public Use
  Company Number: PHHY2011US42359

PATIENT
  Age: 47 Year
  Sex: Male

DRUGS (1)
  1. GLEEVEC (IMATINIB) UNKNOWN [Suspect]
     Indication: SYSTEMIC MASTOCYTOSIS
     Route: 048
     Dates: start: 20101206, end: 2011

REACTIONS (12)
  - Nausea [None]
  - Depression [None]
  - Hypotension [None]
  - Pain [None]
  - Sexual dysfunction [None]
  - Bradycardia [None]
  - Muscle spasms [None]
  - Weight decreased [None]
  - Insomnia [None]
  - Abdominal pain upper [None]
  - Night sweats [None]
  - Constipation [None]
